FAERS Safety Report 9566183 (Version 2)
Quarter: 2013Q4

REPORT INFORMATION
  Report Type: Spontaneous
  Country: US (occurrence: US)
  Receive Date: 20130930
  Receipt Date: 20131120
  Transmission Date: 20140711
  Serious: Yes (Other)
  Sender: FDA-Public Use
  Company Number: US-ASTRAZENECA-2013SE56938

PATIENT
  Age: 22041 Day
  Sex: Female
  Weight: 76.7 kg

DRUGS (17)
  1. BRILINTA [Suspect]
     Indication: CORONARY ARTERIAL STENT INSERTION
     Route: 048
     Dates: start: 20130724, end: 20130724
  2. LISINOPRIL [Suspect]
     Route: 048
  3. NOVOLOG [Concomitant]
     Indication: DIABETES MELLITUS
     Dosage: 70/30 UNK
  4. HYDROCODONE [Concomitant]
     Indication: PAIN
     Route: 048
  5. METHOCARBAMOL [Concomitant]
     Route: 048
  6. HCT [Concomitant]
     Indication: DIURETIC THERAPY
     Route: 048
  7. CARDIZEM [Concomitant]
     Indication: CARDIAC DISORDER
     Route: 048
  8. HEARTPACK [Concomitant]
     Dosage: 4 UNK
     Route: 048
  9. NITROGLYCERIN [Concomitant]
     Dosage: 0.4 UNK
  10. CYCLOBENZAPRINE [Concomitant]
  11. FLUTICASONE [Concomitant]
  12. ASA [Concomitant]
  13. NOVOLIN [Concomitant]
  14. ATORVASTATIN [Concomitant]
  15. PAROXETINE [Concomitant]
  16. VITAMIN D [Concomitant]
  17. FLOMAX [Concomitant]

REACTIONS (11)
  - Dyspnoea [Recovered/Resolved]
  - Phobia [Recovering/Resolving]
  - Extrasystoles [Recovering/Resolving]
  - Dyspnoea [Recovering/Resolving]
  - Hypoaesthesia [Recovering/Resolving]
  - Asthenia [Recovering/Resolving]
  - Feeling abnormal [Recovering/Resolving]
  - Hypoaesthesia oral [Recovering/Resolving]
  - Hypoaesthesia [Recovering/Resolving]
  - Dizziness [Recovering/Resolving]
  - Dizziness [Recovering/Resolving]
